FAERS Safety Report 13381812 (Version 1)
Quarter: 2017Q1

REPORT INFORMATION
  Report Type: Spontaneous
  Country: US (occurrence: US)
  Receive Date: 20170329
  Receipt Date: 20170329
  Transmission Date: 20170429
  Serious: Yes (Disabling)
  Sender: FDA-Public Use
  Company Number: None

PATIENT
  Age: 29 Year
  Sex: Male
  Weight: 74.25 kg

DRUGS (4)
  1. PROBIOTICS [Concomitant]
     Active Substance: PROBIOTICS NOS
  2. MULTIVITAMIN [Concomitant]
     Active Substance: VITAMINS
  3. CIPRO [Suspect]
     Active Substance: CIPROFLOXACIN HYDROCHLORIDE
     Indication: PROSTATIC DISORDER
     Route: 048
     Dates: start: 20161206, end: 20170223
  4. MAGNESIUM [Concomitant]
     Active Substance: MAGNESIUM

REACTIONS (11)
  - Arthralgia [None]
  - Diplopia [None]
  - Inflammation [None]
  - Temporomandibular joint syndrome [None]
  - Oesophageal disorder [None]
  - Dyspepsia [None]
  - Panic attack [None]
  - Myalgia [None]
  - Photophobia [None]
  - Depression [None]
  - Anxiety [None]

NARRATIVE: CASE EVENT DATE: 20170202
